FAERS Safety Report 8874685 (Version 3)
Quarter: 2012Q4

REPORT INFORMATION
  Report Type: 
  Country: US (occurrence: US)
  Receive Date: 20121031
  Receipt Date: 20121112
  Transmission Date: 20130627
  Serious: Yes (Hospitalization)
  Sender: FDA-Public Use
  Company Number: US-ASTRAZENECA-2012SE80013

PATIENT
  Age: 55 Year
  Sex: Female

DRUGS (3)
  1. NEXIUM [Suspect]
     Route: 048
  2. TOPROL XL [Suspect]
     Route: 048
  3. OMEPRAZOLE [Suspect]
     Route: 048

REACTIONS (4)
  - Gastrooesophageal reflux disease [Unknown]
  - Helicobacter infection [Unknown]
  - Malaise [Unknown]
  - Drug dose omission [Unknown]
